FAERS Safety Report 21296995 (Version 1)
Quarter: 2022Q3

REPORT INFORMATION
  Report Type: Spontaneous
  Country: IT (occurrence: None)
  Receive Date: 20220906
  Receipt Date: 20220906
  Transmission Date: 20221027
  Serious: Yes (Hospitalization)
  Sender: FDA-Public Use
  Company Number: IT-ROCHE-3174027

PATIENT
  Age: 77 Year
  Sex: Female

DRUGS (4)
  1. RIVOTRIL [Suspect]
     Active Substance: CLONAZEPAM
     Indication: Depression
     Dosage: THE PATIENT TAKES THE ENTIRE VIAL OF DROPS, PATIENT WAS ALREADY BEING TREATED WITH RIVOTRIL FOR DEPR
     Route: 048
     Dates: start: 20220817, end: 20220817
  2. RIVOTRIL [Suspect]
     Active Substance: CLONAZEPAM
     Indication: Intentional self-injury
  3. AMITRIPTYLINE HYDROCHLORIDE\PERPHENAZINE [Concomitant]
     Active Substance: AMITRIPTYLINE HYDROCHLORIDE\PERPHENAZINE
  4. CIPRALEX [Concomitant]
     Active Substance: ESCITALOPRAM OXALATE

REACTIONS (4)
  - Confusional state [Recovering/Resolving]
  - Substance abuse [Unknown]
  - Disorganised speech [Recovering/Resolving]
  - Product use in unapproved indication [Unknown]

NARRATIVE: CASE EVENT DATE: 20220817
